FAERS Safety Report 21322836 (Version 1)
Quarter: 2022Q3

REPORT INFORMATION
  Report Type: Report from Study
  Country: NL (occurrence: NL)
  Receive Date: 20220912
  Receipt Date: 20220912
  Transmission Date: 20221027
  Serious: Yes (Death)
  Sender: FDA-Public Use
  Company Number: NL-ABBVIE-22K-114-4529410-00

PATIENT
  Age: 63 Year
  Sex: Male

DRUGS (9)
  1. CARBIDOPA\LEVODOPA [Suspect]
     Active Substance: CARBIDOPA\LEVODOPA
     Indication: Parkinson^s disease
     Route: 050
  2. CARBIDOPA\LEVODOPA [Suspect]
     Active Substance: CARBIDOPA\LEVODOPA
     Dosage: MD: 13.0 ML, CD: 7.6 ML/H, ED: 2.0 ML, CND: 3.0 ML/H
     Route: 050
  3. CARBIDOPA\LEVODOPA [Suspect]
     Active Substance: CARBIDOPA\LEVODOPA
     Dosage: MD: 13.0 ML, CD: 7.6 ML/H, ED: 2.0 ML, CND: 3.8 ML/H
     Route: 050
  4. CARBIDOPA\LEVODOPA [Suspect]
     Active Substance: CARBIDOPA\LEVODOPA
     Dosage: NIGHT PUMP MD: 13.0 ML, CND: 4.0 ML/H, END: 2.0 ML
     Route: 050
  5. CARBIDOPA\LEVODOPA [Suspect]
     Active Substance: CARBIDOPA\LEVODOPA
     Dosage: CD: 7.8 ML/H, ED: 2.0 ML, CND: 0.0 ML/H
     Route: 050
  6. CARBIDOPA\LEVODOPA [Suspect]
     Active Substance: CARBIDOPA\LEVODOPA
     Dosage: CD: 7.6 ML/H, ED: 2.0 ML, ND: 13.0 ML, CND: 4.0 ML/H, END: 2.0 ML
     Route: 050
  7. CARBIDOPA\LEVODOPA [Suspect]
     Active Substance: CARBIDOPA\LEVODOPA
     Dosage: CD: 7.8 ML/H, ED: 2.0 ML, ND: 13.0 ML, CND: 4.0 ML/H, END: 2.0 ML
     Route: 050
  8. CLOZAPINE [Concomitant]
     Active Substance: CLOZAPINE
     Indication: Hallucination
  9. CLOZAPINE [Concomitant]
     Active Substance: CLOZAPINE
     Indication: Confusional state

REACTIONS (1)
  - Death [Fatal]

NARRATIVE: CASE EVENT DATE: 20220830
